FAERS Safety Report 8273909-9 (Version None)
Quarter: 2012Q2

REPORT INFORMATION
  Report Type: 
  Country: None (occurrence: None)
  Receive Date: 20120411
  Receipt Date: 20120406
  Transmission Date: 20120825
  Serious: Yes (Death, Life-Threatening, Other)
  Sender: FDA-Public Use
  Company Number: CELGENEUS-087-21880-12030475

PATIENT
  Sex: Female
  Weight: 55 kg

DRUGS (10)
  1. NOREPINEPHRINE BITARTRATE [Concomitant]
     Route: 065
     Dates: start: 20120301
  2. REVLIMID [Suspect]
     Dosage: 10 MILLIGRAM
     Route: 048
     Dates: start: 20120228, end: 20120305
  3. FAMOTIDINE [Concomitant]
     Dosage: 20 MILLIGRAM
     Route: 048
     Dates: start: 20120306, end: 20120307
  4. NORVASC [Concomitant]
     Dosage: 5 MILLIGRAM
     Route: 048
     Dates: start: 20120306, end: 20120307
  5. BIO-THREE [Concomitant]
     Dosage: 6 TABLET
     Route: 048
     Dates: start: 20120229, end: 20120307
  6. MPSL PULSE [Concomitant]
     Dosage: 1000 MILLIGRAM
     Route: 065
     Dates: start: 20120101
  7. DIOVAN [Concomitant]
     Dosage: 80 MILLIGRAM
     Route: 048
     Dates: start: 20120306, end: 20120307
  8. CATABON [Concomitant]
     Route: 065
     Dates: start: 20120301
  9. PLAVIX [Concomitant]
     Dosage: 75 MILLIGRAM
     Route: 048
     Dates: start: 20120306, end: 20120307
  10. ZOLPIDEM [Concomitant]
     Dosage: 10 MILLIGRAM
     Route: 048
     Dates: start: 20120306, end: 20120307

REACTIONS (4)
  - CARDIAC FAILURE CONGESTIVE [None]
  - DIARRHOEA [None]
  - HAEMOLYTIC ANAEMIA [None]
  - PRURITUS [None]
